FAERS Safety Report 7704369-1 (Version None)
Quarter: 2011Q3

REPORT INFORMATION
  Report Type: 
  Country: None (occurrence: None)
  Receive Date: 20110823
  Receipt Date: 20110816
  Transmission Date: 20111222
  Serious: Yes (Life-Threatening, Hospitalization, Disabling)
  Sender: FDA-Public Use
  Company Number: JP-MERCK-1106USA02228

PATIENT
  Age: 70 Year
  Sex: Male

DRUGS (5)
  1. PRAVASTATIN [Suspect]
     Indication: DYSLIPIDAEMIA
     Route: 048
     Dates: end: 20110201
  2. VOGLIBOSE [Suspect]
     Indication: DIABETES MELLITUS
     Route: 048
     Dates: end: 20110201
  3. FAMOTIDINE [Suspect]
     Indication: GASTRITIS
     Route: 048
     Dates: end: 20110202
  4. METFORMIN HCL [Suspect]
     Indication: DIABETES MELLITUS
     Route: 048
     Dates: end: 20110201
  5. JANUVIA [Suspect]
     Indication: DIABETES MELLITUS
     Route: 048
     Dates: start: 20110101, end: 20110201

REACTIONS (1)
  - INTERSTITIAL LUNG DISEASE [None]
